FAERS Safety Report 5598222-X (Version None)
Quarter: 2007Q4

REPORT INFORMATION
  Report Type: 
  Country: None (occurrence: None)
  Receive Date: 20071226
  Receipt Date: 20070921
  Transmission Date: 20080405
  Serious: No
  Sender: FDA-Public Use
  Company Number: 2007PV033468

PATIENT
  Age: 71 Year
  Sex: Female

DRUGS (5)
  1. SYMLIN [Suspect]
     Indication: TYPE 2 DIABETES MELLITUS
     Dosage: 120,90,60 MCG, TID, SC
     Route: 058
     Dates: start: 20070501, end: 20070520
  2. SYMLIN [Suspect]
     Indication: TYPE 2 DIABETES MELLITUS
     Dosage: 120,90,60 MCG, TID, SC
     Route: 058
     Dates: start: 20070521, end: 20070731
  3. SYMLIN [Suspect]
     Indication: TYPE 2 DIABETES MELLITUS
     Dosage: 120,90,60 MCG, TID, SC
     Route: 058
     Dates: start: 20070801
  4. NOVOLOG [Concomitant]
  5. LANTUS [Concomitant]

REACTIONS (3)
  - CONSTIPATION [None]
  - NAUSEA [None]
  - VOMITING [None]
